FAERS Safety Report 14875090 (Version 1)
Quarter: 2018Q2

REPORT INFORMATION
  Report Type: Report from Study
  Country: None (occurrence: RO)
  Receive Date: 20180510
  Receipt Date: 20180510
  Transmission Date: 20180711
  Serious: Yes (Other)
  Sender: FDA-Public Use
  Company Number: RO-ABBVIE-18K-135-2350621-00

PATIENT
  Age: 54 Year
  Sex: Female

DRUGS (5)
  1. NEBILET [Concomitant]
     Active Substance: NEBIVOLOL
     Indication: HYPERTENSION
     Route: 048
     Dates: start: 2012
  2. ESSENTIALE FORTE [Concomitant]
     Indication: HEPATIC STEATOSIS
     Route: 048
  3. OMERAN [Concomitant]
     Indication: PROPHYLAXIS
     Route: 048
  4. MOVALIS [Concomitant]
     Active Substance: MELOXICAM
     Indication: INTERCOSTAL NEURALGIA
     Route: 048
  5. HUMIRA [Suspect]
     Active Substance: ADALIMUMAB
     Indication: PSORIASIS
     Route: 058
     Dates: start: 20161015

REACTIONS (2)
  - Hepatic steatosis [Not Recovered/Not Resolved]
  - Intercostal neuralgia [Not Recovered/Not Resolved]

NARRATIVE: CASE EVENT DATE: 201711
